FAERS Safety Report 16797061 (Version 1)
Quarter: 2019Q3

REPORT INFORMATION
  Report Type: Spontaneous
  Country: TN (occurrence: TN)
  Receive Date: 20190911
  Receipt Date: 20190911
  Transmission Date: 20191005
  Serious: Yes (Other)
  Sender: FDA-Public Use
  Company Number: PHHY2019TN210743

PATIENT
  Age: 38 Year
  Sex: Female

DRUGS (1)
  1. HYDROXYCHLOROQUINE [Suspect]
     Active Substance: HYDROXYCHLOROQUINE
     Indication: SJOGREN^S SYNDROME
     Dosage: 500 MG, QD (7.6 MG/KG/DAY)
     Route: 065

REACTIONS (4)
  - Maculopathy [Unknown]
  - Retinal toxicity [Unknown]
  - Visual impairment [Unknown]
  - Product use in unapproved indication [Unknown]
